FAERS Safety Report 15090662 (Version 1)
Quarter: 2018Q2

REPORT INFORMATION
  Report Type: Spontaneous
  Country: IT (occurrence: IT)
  Receive Date: 20180629
  Receipt Date: 20180629
  Transmission Date: 20180711
  Serious: Yes (Hospitalization)
  Sender: FDA-Public Use
  Company Number: IT-TEVA-2018-IT-917272

PATIENT
  Age: 43 Year
  Sex: Female

DRUGS (2)
  1. ENDOXAN BAXTER [Suspect]
     Active Substance: CYCLOPHOSPHAMIDE
     Indication: BREAST CANCER
     Dates: start: 20171227
  2. EPIRUBICINA TEVA 2 MG/ML SOLUZIONE INIETTABILE O PER INFUSIONE [Suspect]
     Active Substance: EPIRUBICIN
     Indication: BREAST CANCER
     Dates: start: 20171227

REACTIONS (4)
  - Pyrexia [Recovering/Resolving]
  - Venous thrombosis limb [Recovering/Resolving]
  - Asthenia [Recovering/Resolving]
  - Malaise [Recovering/Resolving]

NARRATIVE: CASE EVENT DATE: 20180207
